FAERS Safety Report 14212048 (Version 3)
Quarter: 2017Q4

REPORT INFORMATION
  Report Type: Spontaneous
  Country: US (occurrence: US)
  Receive Date: 20171121
  Receipt Date: 20171228
  Transmission Date: 20180321
  Serious: Yes (Other)
  Sender: FDA-Public Use
  Company Number: US-GILEAD-2017-0305250

PATIENT
  Age: 57 Year
  Sex: Female
  Weight: 61.6 kg

DRUGS (1)
  1. HARVONI [Suspect]
     Active Substance: LEDIPASVIR\SOFOSBUVIR
     Indication: PRODUCT USED FOR UNKNOWN INDICATION
     Dosage: 1 DF, UNK
     Route: 048
     Dates: start: 20171107, end: 20171110

REACTIONS (4)
  - Thinking abnormal [Recovering/Resolving]
  - Disorientation [Recovering/Resolving]
  - Suicidal ideation [Recovered/Resolved]
  - Negative thoughts [Recovered/Resolved]

NARRATIVE: CASE EVENT DATE: 20171108
